FAERS Safety Report 20557239 (Version 2)
Quarter: 2022Q1

REPORT INFORMATION
  Report Type: Spontaneous
  Country: US (occurrence: US)
  Receive Date: 20220307
  Receipt Date: 20220315
  Transmission Date: 20220423
  Serious: No
  Sender: FDA-Public Use
  Company Number: US-LUPIN PHARMACEUTICALS INC.-2022-03026

PATIENT
  Sex: Female
  Weight: 105.23 kg

DRUGS (1)
  1. LISINOPRIL [Suspect]
     Active Substance: LISINOPRIL
     Indication: Protein urine present
     Dosage: 2.5 MG, QD
     Route: 048
     Dates: start: 202110, end: 202201

REACTIONS (2)
  - Cough [Unknown]
  - Off label use [Unknown]
